FAERS Safety Report 23680577 (Version 1)
Quarter: 2024Q1

REPORT INFORMATION
  Report Type: Spontaneous
  Country: FR (occurrence: FR)
  Receive Date: 20240328
  Receipt Date: 20240328
  Transmission Date: 20240410
  Serious: Yes (Other)
  Sender: FDA-Public Use
  Company Number: FR-AFSSAPS-MA2024000284

PATIENT
  Age: 22 Year
  Sex: Male

DRUGS (4)
  1. RISPERIDONE [Suspect]
     Active Substance: RISPERIDONE
     Indication: Schizophrenia
     Dosage: 10 MILLIGRAM, ONCE A DAY
     Route: 048
     Dates: start: 20230504
  2. RISPERIDONE [Suspect]
     Active Substance: RISPERIDONE
     Dosage: 8 MILLIGRAM, ONCE A DAY
     Route: 048
     Dates: start: 20230531
  3. CYAMEMAZINE [Suspect]
     Active Substance: CYAMEMAZINE
     Indication: Schizophrenia
     Dosage: 100 DOSAGE FORM, ONCE A DAY
     Route: 048
     Dates: start: 20230602
  4. CYAMEMAZINE [Suspect]
     Active Substance: CYAMEMAZINE
     Dosage: 125 MILLIGRAM
     Route: 048
     Dates: start: 20230604

REACTIONS (1)
  - Hyperprolactinaemia [Unknown]

NARRATIVE: CASE EVENT DATE: 20230614
